FAERS Safety Report 19777209 (Version 1)
Quarter: 2021Q3

REPORT INFORMATION
  Report Type: Spontaneous
  Country: US (occurrence: US)
  Receive Date: 20210901
  Receipt Date: 20210901
  Transmission Date: 20211014
  Serious: No
  Sender: FDA-Public Use
  Company Number: US-009507513-2108USA001319

PATIENT
  Age: 69 Year
  Sex: Male

DRUGS (1)
  1. PRIMAXIN IV [Suspect]
     Active Substance: CILASTATIN SODIUM\IMIPENEM
     Indication: CAPNOCYTOPHAGA INFECTION
     Dosage: UNK; REPORTED THAT HE COMPLETED A FOUR?WEEK COURSE OF INTRAVENOUS ANTIMICROBIALS
     Route: 042

REACTIONS (1)
  - Product use in unapproved indication [Unknown]
